APPROVED DRUG PRODUCT: BICNU
Active Ingredient: CARMUSTINE
Strength: 100MG/VIAL
Dosage Form/Route: INJECTABLE;INJECTION
Application: N017422 | Product #001 | TE Code: AP
Applicant: AVET LIFESCIENCES LTD
Approved: Approved Prior to Jan 1, 1982 | RLD: Yes | RS: Yes | Type: RX